FAERS Safety Report 7764329-1 (Version None)
Quarter: 2011Q3

REPORT INFORMATION
  Report Type: 
  Country: None (occurrence: None)
  Receive Date: 20110921
  Receipt Date: 20110913
  Transmission Date: 20111222
  Serious: Yes (Hospitalization)
  Sender: FDA-Public Use
  Company Number: JP-BRISTOL-MYERS SQUIBB COMPANY-15968332

PATIENT
  Age: 57 Year
  Sex: Female

DRUGS (4)
  1. NORVASC [Suspect]
     Indication: ESSENTIAL HYPERTENSION
     Dosage: 1DF 17NOV10-18JAN11, 19JAN11-ONG
     Route: 048
     Dates: start: 20101117, end: 20110118
  2. ADVAIR DISKUS 100/50 [Concomitant]
     Indication: ASTHMA
  3. MEPTIN [Concomitant]
     Indication: ASTHMA
  4. AVAPRO [Suspect]
     Indication: ESSENTIAL HYPERTENSION
     Dosage: 100MG 9OCT10-16NOV10 DUR 39DYS, 1DF 17NOV10-18JAN11, 19JAN11-ONG
     Route: 048
     Dates: start: 20101009

REACTIONS (1)
  - RECTAL POLYP [None]
